FAERS Safety Report 4281218-8 (Version None)
Quarter: 2004Q1

REPORT INFORMATION
  Report Type: 
  Country: None (occurrence: None)
  Receive Date: 20040108
  Receipt Date: 20030418
  Transmission Date: 20041129
  Serious: Yes (Other)
  Sender: FDA-Public Use
  Company Number: HQWYE762321APR03

PATIENT
  Age: 64 Year
  Sex: Female
  Weight: 90.8 kg

DRUGS (3)
  1. PREMPRO [Suspect]
     Dosage: 0.625 MG/2.5MG, ORAL
     Route: 048
     Dates: start: 19980101, end: 20030223
  2. ATENOLOL [Concomitant]
  3. ZOCOR [Concomitant]

REACTIONS (1)
  - BREAST CANCER FEMALE [None]
